FAERS Safety Report 5126557-3 (Version None)
Quarter: 2006Q4

REPORT INFORMATION
  Report Type: 
  Country: None (occurrence: None)
  Receive Date: 20061012
  Receipt Date: 20061012
  Transmission Date: 20070319
  Serious: Yes (Other)
  Sender: FDA-Public Use
  Company Number: None

PATIENT
  Age: 18 Year
  Sex: Male

DRUGS (1)
  1. LIDOCAINE HCL [Suspect]
     Indication: SUNBURN
     Dosage: ONCE;TOP
     Route: 061
     Dates: start: 20060610, end: 20060610

REACTIONS (9)
  - ADVERSE DRUG REACTION [None]
  - BLISTER [None]
  - BURNS SECOND DEGREE [None]
  - ERYTHEMA [None]
  - GAIT DISTURBANCE [None]
  - HYPERAESTHESIA [None]
  - INFECTION [None]
  - LOCAL SWELLING [None]
  - SKIN EXFOLIATION [None]
